FAERS Safety Report 18337682 (Version 1)
Quarter: 2020Q4

REPORT INFORMATION
  Report Type: Report from Study
  Country: US (occurrence: US)
  Receive Date: 20201002
  Receipt Date: 20201002
  Transmission Date: 20210113
  Serious: Yes (Life-Threatening, Hospitalization)
  Sender: FDA-Public Use
  Company Number: US-EMD SERONO-9180401

PATIENT
  Age: 64 Year
  Sex: Male
  Weight: 73 kg

DRUGS (3)
  1. AVELUMAB [Suspect]
     Active Substance: AVELUMAB
     Indication: HORMONE-REFRACTORY PROSTATE CANCER
     Dosage: CYCLICALLY (DAYS 1, 15)
     Route: 042
     Dates: start: 20200602
  2. PT-112 [Suspect]
     Active Substance: INVESTIGATIONAL PRODUCT
     Indication: HORMONE-REFRACTORY PROSTATE CANCER
     Dosage: CYCLICALLY (DAYS 1, 15)
     Route: 042
     Dates: start: 20200602
  3. LUPRON [Concomitant]
     Active Substance: LEUPROLIDE ACETATE
     Indication: PRODUCT USED FOR UNKNOWN INDICATION
     Dates: start: 20200709

REACTIONS (1)
  - Anaemia [Recovering/Resolving]

NARRATIVE: CASE EVENT DATE: 20200804
